FAERS Safety Report 9982178 (Version 1)
Quarter: 2014Q1

REPORT INFORMATION
  Report Type: Report from Study
  Country: US (occurrence: US)
  Receive Date: 20140307
  Receipt Date: 20140307
  Transmission Date: 20141002
  Serious: No
  Sender: FDA-Public Use
  Company Number: US-ABBVIE-13P-163-1177132-00

PATIENT
  Age: 49 Year
  Sex: Male

DRUGS (9)
  1. HUMIRA [Suspect]
     Indication: CROHN^S DISEASE
     Dates: start: 201112
  2. LISINOPRIL [Concomitant]
     Indication: HYPERTENSION
  3. VIREAD [Concomitant]
     Indication: HEPATITIS B
     Dosage: EVERY NIGHT
  4. CITALOPRAM [Concomitant]
     Indication: DEPRESSION
     Dosage: AT BED TIME
  5. CONCERTA [Concomitant]
     Indication: ATTENTION DEFICIT/HYPERACTIVITY DISORDER
     Dosage: TWO IN AM AND TWO AT NOON
  6. RITALIN [Concomitant]
     Indication: ATTENTION DEFICIT/HYPERACTIVITY DISORDER
     Dosage: 20 MG IN AM AND 20 MG AT NOON
  7. LORTAB [Concomitant]
     Indication: CROHN^S DISEASE
  8. PRENATAL VITAMINS [Concomitant]
     Indication: VITAMIN SUPPLEMENTATION
  9. RATADINE [Concomitant]
     Indication: SEASONAL ALLERGY

REACTIONS (4)
  - Fatigue [Not Recovered/Not Resolved]
  - Incorrect dose administered [Recovered/Resolved]
  - Injection site pain [Not Recovered/Not Resolved]
  - Vision blurred [Not Recovered/Not Resolved]
